FAERS Safety Report 6549233-9 (Version None)
Quarter: 2010Q1

REPORT INFORMATION
  Report Type: 
  Country: None (occurrence: None)
  Receive Date: 20100125
  Receipt Date: 20100113
  Transmission Date: 20100710
  Serious: Yes (Death)
  Sender: FDA-Public Use
  Company Number: US-WYE-H13056010

PATIENT
  Age: 40 Year
  Sex: Female
  Weight: 137 kg

DRUGS (3)
  1. VENLAFAXINE HCL [Suspect]
     Dosage: UNKNOWN
     Route: 048
  2. TRAZODONE [Suspect]
     Dosage: UNKNOWN
  3. CYMBALTA [Suspect]

REACTIONS (2)
  - COMPLETED SUICIDE [None]
  - DRUG TOXICITY [None]
